FAERS Safety Report 17568377 (Version 4)
Quarter: 2020Q3

REPORT INFORMATION
  Report Type: Spontaneous
  Country: US (occurrence: US)
  Receive Date: 20200320
  Receipt Date: 20200805
  Transmission Date: 20201102
  Serious: Yes (Life-Threatening, Hospitalization, Other)
  Sender: FDA-Public Use
  Company Number: US-PFIZER INC-2020002011

PATIENT
  Age: 77 Year
  Sex: Female
  Weight: 80.74 kg

DRUGS (4)
  1. METHOTREXATE. [Concomitant]
     Active Substance: METHOTREXATE
     Indication: RHEUMATOID ARTHRITIS
     Dosage: 25 MG, WEEKLY
  2. METHOTREXATE. [Concomitant]
     Active Substance: METHOTREXATE
     Indication: INFLAMMATION
  3. XELJANZ XR [Suspect]
     Active Substance: TOFACITINIB CITRATE
     Indication: RHEUMATOID ARTHRITIS
     Dosage: 11 MG, 1X/DAY
     Route: 048
     Dates: start: 2019, end: 2019
  4. XELJANZ XR [Suspect]
     Active Substance: TOFACITINIB CITRATE
     Indication: INFLAMMATION
     Dosage: 11 MG, 1X/DAY
     Route: 048
     Dates: start: 20190920, end: 20200312

REACTIONS (11)
  - Thrombosis [Unknown]
  - Deep vein thrombosis [Recovering/Resolving]
  - Hip fracture [Recovering/Resolving]
  - Fall [Recovering/Resolving]
  - Weight increased [Unknown]
  - Coronary artery thrombosis [Unknown]
  - Syncope [Recovered/Resolved with Sequelae]
  - Pulmonary thrombosis [Unknown]
  - Body height decreased [Unknown]
  - Cardiac arrest [Recovered/Resolved with Sequelae]
  - Pulmonary embolism [Recovering/Resolving]

NARRATIVE: CASE EVENT DATE: 202002
